FAERS Safety Report 9109869 (Version 1)
Quarter: 2013Q1

REPORT INFORMATION
  Report Type: Spontaneous
  Country: US (occurrence: US)
  Receive Date: 20130222
  Receipt Date: 20130222
  Transmission Date: 20140127
  Serious: Yes (Death, Hospitalization)
  Sender: FDA-Public Use
  Company Number: US-JNJFOC-20130208066

PATIENT
  Age: 36 Year
  Sex: Female

DRUGS (3)
  1. INFLIXIMAB, RECOMBINANT [Suspect]
     Indication: CROHN^S DISEASE
     Route: 042
  2. PREDNISONE [Suspect]
     Indication: CROHN^S DISEASE
     Route: 065
  3. PREDNISONE [Suspect]
     Indication: CROHN^S DISEASE
     Dosage: TAPERED DOWN
     Route: 065

REACTIONS (1)
  - T-cell lymphoma [Fatal]
